FAERS Safety Report 4829599-8 (Version None)
Quarter: 2005Q4

REPORT INFORMATION
  Report Type: 
  Country: None (occurrence: None)
  Receive Date: 20051116
  Receipt Date: 20051110
  Transmission Date: 20060501
  Serious: Yes (Hospitalization)
  Sender: FDA-Public Use
  Company Number: BR-ABBOTT-05P-020-0317081-00

PATIENT
  Age: 25 Year
  Sex: Female

DRUGS (3)
  1. KALETRA [Suspect]
     Indication: HIV INFECTION
     Dosage: 6 CAPSULES PER DAY
     Route: 048
     Dates: start: 20050801
  2. ZIDOVUDINE W/LAMIVUDINE [Concomitant]
     Indication: HIV INFECTION
     Dosage: 4 TABLETS PER DAY
     Route: 048
  3. NOT REPORTED MEDICATION [Concomitant]
     Indication: ANAEMIA

REACTIONS (3)
  - ANAEMIA [None]
  - SYNCOPE [None]
  - WHITE BLOOD CELL COUNT DECREASED [None]
